FAERS Safety Report 4504706-5 (Version None)
Quarter: 2004Q4

REPORT INFORMATION
  Report Type: 
  Country: None (occurrence: None)
  Receive Date: 20041118
  Receipt Date: 20041109
  Transmission Date: 20050328
  Serious: Yes (Disabling)
  Sender: FDA-Public Use
  Company Number: NL-MERCK-0411NLD00017

PATIENT
  Age: 60 Year
  Sex: Male

DRUGS (1)
  1. TIMOPTIC [Suspect]
     Route: 065
     Dates: start: 20040101, end: 20041001

REACTIONS (1)
  - MENIERE'S DISEASE [None]
